FAERS Safety Report 7533626-7 (Version None)
Quarter: 2011Q2

REPORT INFORMATION
  Report Type: 
  Country: None (occurrence: None)
  Receive Date: 20110608
  Receipt Date: 20060303
  Transmission Date: 20111010
  Serious: Yes (Hospitalization, Other)
  Sender: FDA-Public Use
  Company Number: PHFR2005GB03533

PATIENT
  Sex: Male

DRUGS (3)
  1. CLOZAPINE [Suspect]
     Indication: SCHIZOPHRENIA
     Dosage: 400MG DAILY
     Route: 065
     Dates: start: 20010616, end: 20051025
  2. OXYBUTYNIN [Suspect]
     Indication: URINARY INCONTINENCE
     Dosage: 2.5 MG, BID
     Route: 048
     Dates: start: 20050331, end: 20051001
  3. CITALOPRAM HYDROBROMIDE [Concomitant]
     Indication: ANXIETY
     Dosage: 20 MG, /DAY
     Route: 048
     Dates: start: 20030101, end: 20051001

REACTIONS (6)
  - BLOOD CREATININE INCREASED [None]
  - RENAL IMPAIRMENT [None]
  - URINARY INCONTINENCE [None]
  - RENAL FAILURE [None]
  - BLOOD UREA INCREASED [None]
  - URINARY RETENTION [None]
